FAERS Safety Report 19457239 (Version 1)
Quarter: 2021Q2

REPORT INFORMATION
  Report Type: Spontaneous
  Country: BR (occurrence: BR)
  Receive Date: 20210624
  Receipt Date: 20210624
  Transmission Date: 20210717
  Serious: Yes (Other)
  Sender: FDA-Public Use
  Company Number: NVSC2021BR134639

PATIENT
  Sex: Male

DRUGS (3)
  1. CONCOR HCT [Concomitant]
     Indication: PRODUCT USED FOR UNKNOWN INDICATION
     Dosage: 5 MG
     Route: 065
  2. DIOVAN [Suspect]
     Active Substance: VALSARTAN
     Indication: HYPERTENSION
     Dosage: 320 MG  (STOP DATE: 1 WEEK AGO)
     Route: 065
     Dates: start: 201912
  3. RASILEZ [Concomitant]
     Active Substance: ALISKIREN
     Indication: HYPERTENSION
     Dosage: 300 MG (START DATE: MORE THAN 10 YEARS AGO)
     Route: 065
     Dates: end: 201912

REACTIONS (3)
  - Choking [Not Recovered/Not Resolved]
  - Cough [Unknown]
  - Reflux gastritis [Unknown]
